FAERS Safety Report 12945819 (Version 1)
Quarter: 2016Q4

REPORT INFORMATION
  Report Type: Spontaneous
  Country: US (occurrence: US)
  Receive Date: 20161115
  Receipt Date: 20161115
  Transmission Date: 20170207
  Serious: Yes (Death, Hospitalization, Other)
  Sender: FDA-Public Use
  Company Number: US-GLAXOSMITHKLINE-US2016168710

PATIENT
  Age: 60 Year
  Sex: Male

DRUGS (2)
  1. PROVENTIL [Concomitant]
     Active Substance: ALBUTEROL
  2. ADVAIR DISKUS [Suspect]
     Active Substance: FLUTICASONE PROPIONATE\SALMETEROL XINAFOATE
     Indication: CHRONIC OBSTRUCTIVE PULMONARY DISEASE
     Dosage: 1 PUFF(S), BID

REACTIONS (6)
  - Restlessness [Recovered/Resolved]
  - Neoplasm malignant [Fatal]
  - Dysstasia [Not Recovered/Not Resolved]
  - Terminal state [Unknown]
  - Mobility decreased [Not Recovered/Not Resolved]
  - Abdominal pain upper [Unknown]

NARRATIVE: CASE EVENT DATE: 201512
